FAERS Safety Report 16393076 (Version 1)
Quarter: 2019Q2

REPORT INFORMATION
  Report Type: Spontaneous
  Country: CN (occurrence: CN)
  Receive Date: 20190605
  Receipt Date: 20190605
  Transmission Date: 20190711
  Serious: Yes (Death, Life-Threatening, Hospitalization, Other)
  Sender: FDA-Public Use
  Company Number: CN-MACLEODS PHARMACEUTICALS US LTD-MAC2019021530

PATIENT

DRUGS (8)
  1. BENAZEPRIL [Concomitant]
     Active Substance: BENAZEPRIL HYDROCHLORIDE
     Indication: ACUTE CORONARY SYNDROME
     Dosage: UNK
     Route: 065
     Dates: start: 20151104
  2. ISOSORBIDE MONONITRATE. [Concomitant]
     Active Substance: ISOSORBIDE MONONITRATE
     Indication: ACUTE CORONARY SYNDROME
     Dosage: UNK
     Route: 065
     Dates: start: 20151104
  3. NIFEDIPINE. [Concomitant]
     Active Substance: NIFEDIPINE
     Indication: ACUTE CORONARY SYNDROME
     Dosage: UNK
     Route: 065
     Dates: start: 20151104
  4. ASPIRIN. [Suspect]
     Active Substance: ASPIRIN
     Indication: ACUTE CORONARY SYNDROME
     Dosage: UNK
     Route: 065
     Dates: start: 20151104, end: 20151111
  5. HEPARIN [Suspect]
     Active Substance: HEPARIN SODIUM
     Indication: ACUTE CORONARY SYNDROME
     Dosage: UNK, LOW-MOLECULAR-WEIGHT HEPARIN
     Route: 065
     Dates: start: 20151104, end: 20151111
  6. ATORVASTATIN [Concomitant]
     Active Substance: ATORVASTATIN
     Indication: ACUTE CORONARY SYNDROME
     Dosage: UNK
     Route: 065
     Dates: start: 20151104
  7. CLOPIDOGREL [Suspect]
     Active Substance: CLOPIDOGREL BISULFATE
     Indication: ACUTE CORONARY SYNDROME
     Dosage: UNK
     Route: 065
     Dates: start: 20151104, end: 20151111
  8. METOPROLOL. [Concomitant]
     Active Substance: METOPROLOL
     Indication: ACUTE CORONARY SYNDROME
     Dosage: UNK
     Route: 065
     Dates: start: 20151104

REACTIONS (3)
  - Multiple organ dysfunction syndrome [Fatal]
  - Gastrointestinal haemorrhage [Unknown]
  - Haematochezia [Not Recovered/Not Resolved]

NARRATIVE: CASE EVENT DATE: 20151111
